FAERS Safety Report 10228178 (Version 1)
Quarter: 2014Q2

REPORT INFORMATION
  Report Type: Spontaneous
  Country: US (occurrence: US)
  Receive Date: 20140610
  Receipt Date: 20140610
  Transmission Date: 20141212
  Serious: Yes (Other)
  Sender: FDA-Public Use
  Company Number: US-ACTAVIS-2014-12649

PATIENT
  Sex: 0

DRUGS (5)
  1. CARBOPLATIN (WATSON LABORATORIES) [Suspect]
     Indication: NEUROBLASTOMA
     Dosage: UNKNOWN
     Route: 065
  2. ETOPOSIDE (WATSON LABORATORIES) [Suspect]
     Indication: NEUROBLASTOMA
     Dosage: UNKNOWN
     Route: 065
  3. CYCLOPHOSPHAMIDE (UNKNOWN) [Suspect]
     Indication: NEUROBLASTOMA
     Dosage: UNKNOWN
     Route: 065
  4. DOXORUBICIN (UNKNOWN) [Suspect]
     Indication: NEUROBLASTOMA
     Dosage: UNKNOWN
     Route: 065
  5. GRANULOCYTE COLONY-STIMULATING FACTOR NOS [Concomitant]
     Indication: PRODUCT USED FOR UNKNOWN INDICATION
     Dosage: UNK
     Route: 065

REACTIONS (1)
  - Small intestinal obstruction [Unknown]
